FAERS Safety Report 5552368-0 (Version None)
Quarter: 2007Q4

REPORT INFORMATION
  Report Type: 
  Country: None (occurrence: None)
  Receive Date: 20071212
  Receipt Date: 20071206
  Transmission Date: 20080405
  Serious: Yes (Death, Life-Threatening, Hospitalization, Disabling, Other)
  Sender: FDA-Public Use
  Company Number: GB-MERCK-0712GBR00026

PATIENT
  Age: 86 Year
  Sex: Female

DRUGS (5)
  1. FOSAMAX [Suspect]
     Route: 048
     Dates: start: 20071008, end: 20071012
  2. FOSAMAX [Suspect]
     Route: 048
     Dates: start: 20071008, end: 20071012
  3. CALCIUM CARBONATE AND CHOLECALCIFEROL [Suspect]
     Route: 048
     Dates: start: 20071008, end: 20071018
  4. AMLODIPINE BESYLATE [Concomitant]
     Route: 048
     Dates: start: 20070808, end: 20071018
  5. ATENOLOL [Concomitant]
     Route: 048
     Dates: start: 20061011, end: 20071018

REACTIONS (3)
  - GASTRIC ULCER [None]
  - GASTROINTESTINAL HAEMORRHAGE [None]
  - HYPERCALCAEMIA [None]
